FAERS Safety Report 22224001 (Version 1)
Quarter: 2023Q2

REPORT INFORMATION
  Report Type: Spontaneous
  Country: IN (occurrence: IN)
  Receive Date: 20230418
  Receipt Date: 20230418
  Transmission Date: 20230722
  Serious: Yes (Other)
  Sender: FDA-Public Use
  Company Number: IN-PFIZER INC-2020461895

PATIENT
  Age: 82 Year
  Sex: Male

DRUGS (7)
  1. SUTENT [Suspect]
     Active Substance: SUNITINIB MALATE
     Indication: Metastatic renal cell carcinoma
     Dosage: 37.5 MG, 1X/DAY (1-0 21DAYS (2 WEEKS))
     Route: 048
     Dates: start: 20180331
  2. SUTENT [Suspect]
     Active Substance: SUNITINIB MALATE
     Dosage: 25MG, 1X/DAY (1-0 21DAYS (2 WEEKS))
     Route: 048
  3. SUTENT [Suspect]
     Active Substance: SUNITINIB MALATE
     Dosage: UNK, CYCLIC (14 DAYS ON MEDICINE AND 14 DAYS OFF MEDICINE)
  4. SUTENT [Suspect]
     Active Substance: SUNITINIB MALATE
     Dosage: UNK
     Route: 048
     Dates: start: 20230224
  5. PAZOLE D [Concomitant]
     Dosage: UNK UNK, 1X/DAY (1-0)
  6. AMBULAX Z [Concomitant]
     Dosage: UNK UNK, 1X/DAY (0-1)
  7. ADEE [Concomitant]
     Dosage: UNK UNK, 2X/DAY (1-1)

REACTIONS (9)
  - Hypothyroidism [Unknown]
  - Pneumonia viral [Unknown]
  - Viral infection [Unknown]
  - Hypertension [Unknown]
  - Lipids decreased [Unknown]
  - Palmar-plantar erythrodysaesthesia syndrome [Unknown]
  - Urinary tract infection [Unknown]
  - Lower respiratory tract infection [Unknown]
  - COVID-19 [Unknown]

NARRATIVE: CASE EVENT DATE: 20230101
